FAERS Safety Report 7525269-6 (Version None)
Quarter: 2011Q2

REPORT INFORMATION
  Report Type: 
  Country: None (occurrence: None)
  Receive Date: 20110526
  Receipt Date: 20110504
  Transmission Date: 20111010
  Serious: Yes (Hospitalization)
  Sender: FDA-Public Use
  Company Number: 2011-1374

PATIENT
  Age: 65 Year
  Sex: Male

DRUGS (5)
  1. QUETIAPINE FUMARATE [Concomitant]
  2. DOMEPERIDONE (DOMEPIERIDONE) [Concomitant]
  3. MADOPAR DISPERSIBLE (MADOPAR /00349201/) [Concomitant]
  4. APO-GO AMPOULES (APO-GO) (APOMORPHINE HYDROCHLORIDE) (APOMORPHINE HYDR [Suspect]
     Indication: PRODUCT USED FOR UNKNOWN INDICATION
     Dates: start: 20100101, end: 20110401
  5. STALEVO (STALEVO) [Concomitant]

REACTIONS (3)
  - SKIN DISCOLOURATION [None]
  - PANNICULITIS [None]
  - ABSCESS LIMB [None]
